FAERS Safety Report 15254166 (Version 1)
Quarter: 2018Q3

REPORT INFORMATION
  Report Type: Spontaneous
  Country: US (occurrence: US)
  Receive Date: 20180717
  Receipt Date: 20180717
  Transmission Date: 20181010
  Serious: Yes (Hospitalization)
  Sender: FDA-Public Use
  Company Number: None

PATIENT
  Age: 79 Year
  Sex: Male

DRUGS (2)
  1. ASPIRIN. [Suspect]
     Active Substance: ASPIRIN
     Route: 048
  2. APIXABAN [Suspect]
     Active Substance: APIXABAN
     Route: 048

REACTIONS (6)
  - Large intestine polyp [None]
  - Anaemia [None]
  - Diverticulum intestinal haemorrhagic [None]
  - Dyspnoea [None]
  - Occult blood positive [None]
  - Haemorrhoids [None]

NARRATIVE: CASE EVENT DATE: 20180206
